FAERS Safety Report 23026778 (Version 2)
Quarter: 2023Q4

REPORT INFORMATION
  Report Type: Spontaneous
  Country: US (occurrence: US)
  Receive Date: 20231004
  Receipt Date: 20231031
  Transmission Date: 20240109
  Serious: Yes (Other)
  Sender: FDA-Public Use
  Company Number: US-BRISTOL-MYERS SQUIBB COMPANY-2023-137676

PATIENT
  Age: 67 Year
  Sex: Female
  Weight: 88.9 kg

DRUGS (20)
  1. REVLIMID [Suspect]
     Active Substance: LENALIDOMIDE
     Indication: Plasma cell myeloma
     Dosage: 21 DAY ON WEEK 7 DAY OFF
     Route: 048
     Dates: start: 20230919
  2. REVLIMID [Suspect]
     Active Substance: LENALIDOMIDE
     Dosage: AS DIRECTED
     Route: 048
     Dates: start: 20210113, end: 20210205
  3. REVLIMID [Suspect]
     Active Substance: LENALIDOMIDE
     Dosage: AS DIRECTED
     Route: 048
     Dates: start: 20220811, end: 20220816
  4. REVLIMID [Suspect]
     Active Substance: LENALIDOMIDE
     Dosage: AS DIRECTED
     Route: 048
     Dates: start: 20210205, end: 20210302
  5. REVLIMID [Suspect]
     Active Substance: LENALIDOMIDE
     Dosage: AS DIRECTED
     Route: 048
     Dates: start: 20230801, end: 20230901
  6. REVLIMID [Suspect]
     Active Substance: LENALIDOMIDE
     Dosage: AS DIRECTED
     Route: 048
     Dates: start: 20230901, end: 20230921
  7. REVLIMID [Suspect]
     Active Substance: LENALIDOMIDE
     Dosage: AS DIRECTED
     Route: 048
     Dates: start: 20230921, end: 20231023
  8. REVLIMID [Suspect]
     Active Substance: LENALIDOMIDE
     Dosage: AS DIRECTED
     Route: 048
     Dates: start: 20231023
  9. NAPROXEN [Concomitant]
     Active Substance: NAPROXEN
     Indication: Product used for unknown indication
     Route: 048
     Dates: start: 20210205, end: 20210421
  10. NAPROXEN [Concomitant]
     Active Substance: NAPROXEN
     Route: 048
     Dates: start: 20210803, end: 20230816
  11. OXYBUTYNIN CHLORIDE [Concomitant]
     Active Substance: OXYBUTYNIN CHLORIDE
     Indication: Product used for unknown indication
     Route: 048
     Dates: start: 20210205, end: 20210421
  12. HYDROCHLOROTHIAZIDE [Concomitant]
     Active Substance: HYDROCHLOROTHIAZIDE
     Indication: Product used for unknown indication
     Route: 048
     Dates: start: 20210205, end: 20210421
  13. HYDROCHLOROTHIAZIDE [Concomitant]
     Active Substance: HYDROCHLOROTHIAZIDE
     Route: 048
     Dates: start: 20210803
  14. TIZANIDINE HYDROCHLORIDE [Concomitant]
     Active Substance: TIZANIDINE HYDROCHLORIDE
     Indication: Product used for unknown indication
     Route: 048
     Dates: start: 20210205
  15. TRAMADOL HCL [Concomitant]
     Active Substance: TRAMADOL HYDROCHLORIDE
     Indication: Product used for unknown indication
     Dosage: PRN
     Route: 048
     Dates: start: 20210803, end: 20220926
  16. IBUPROFEN [Concomitant]
     Active Substance: IBUPROFEN
     Indication: Product used for unknown indication
     Dosage: PRN
     Route: 048
     Dates: start: 20220623
  17. ZOMETA [Concomitant]
     Active Substance: ZOLEDRONIC ACID
     Indication: Product used for unknown indication
     Dosage: 4MG/5ML?EVERY 6 MONTH
     Route: 042
     Dates: start: 20220926
  18. ALBUTEROL SULFATE [Concomitant]
     Active Substance: ALBUTEROL SULFATE
     Indication: Product used for unknown indication
     Route: 042
     Dates: start: 20220926
  19. ALBUTEROL SULFATE [Concomitant]
     Active Substance: ALBUTEROL SULFATE
     Dosage: PRN?ROUTE INHALATION
     Dates: start: 20230907
  20. PENICILLIN V POTASSIUM [Concomitant]
     Active Substance: PENICILLIN V POTASSIUM
     Indication: Product used for unknown indication
     Route: 048
     Dates: start: 20220623, end: 20220726

REACTIONS (2)
  - Diarrhoea [Recovering/Resolving]
  - Hypokalaemia [Recovering/Resolving]
